FAERS Safety Report 24779002 (Version 2)
Quarter: 2025Q3

REPORT INFORMATION
  Report Type: Report from Study
  Country: JP (occurrence: JP)
  Receive Date: 20241226
  Receipt Date: 20250810
  Transmission Date: 20251021
  Serious: Yes (Other)
  Sender: ALEXION PHARMACEUTICALS
  Company Number: JP-ASTRAZENECA-230072830_011820_P_1

PATIENT
  Age: 17 Year
  Sex: Female
  Weight: 45.4 kg

DRUGS (2)
  1. KOSELUGO [Suspect]
     Active Substance: SELUMETINIB
     Indication: Neurofibroma
     Dosage: 35 MILLIGRAM, BID, MOSTLY ON AN EMPTY STOMACH
     Dates: start: 20230911, end: 20230924
  2. KOSELUGO [Suspect]
     Active Substance: SELUMETINIB
     Dosage: 25 MILLIGRAM, BID, MOSTLY ON AN EMPTY STOMACH
     Dates: start: 20230925

REACTIONS (1)
  - Acne [Recovering/Resolving]

NARRATIVE: CASE EVENT DATE: 20230901
